FAERS Safety Report 15397586 (Version 2)
Quarter: 2018Q4

REPORT INFORMATION
  Report Type: Report from Study
  Country: None (occurrence: US)
  Receive Date: 20180918
  Receipt Date: 20181024
  Transmission Date: 20190204
  Serious: Yes (Other)
  Sender: FDA-Public Use
  Company Number: US-ABBVIE-18K-163-2482363-00

PATIENT
  Sex: Female

DRUGS (1)
  1. HUMIRA [Suspect]
     Active Substance: ADALIMUMAB
     Indication: CROHN^S DISEASE
     Route: 058

REACTIONS (8)
  - Device leakage [Not Recovered/Not Resolved]
  - Skin erosion [Unknown]
  - Furuncle [Not Recovered/Not Resolved]
  - Stoma site rash [Not Recovered/Not Resolved]
  - Stoma site discharge [Unknown]
  - Pyoderma gangrenosum [Not Recovered/Not Resolved]
  - Abdominal hernia [Not Recovered/Not Resolved]
  - Stomal hernia [Not Recovered/Not Resolved]
